FAERS Safety Report 16614418 (Version 1)
Quarter: 2019Q3

REPORT INFORMATION
  Report Type: Spontaneous
  Country: FR (occurrence: FR)
  Receive Date: 20190723
  Receipt Date: 20190723
  Transmission Date: 20191004
  Serious: Yes (Other)
  Sender: FDA-Public Use
  Company Number: FR-PFIZER INC-2019305919

PATIENT
  Age: 67 Year
  Sex: Female
  Weight: 61 kg

DRUGS (2)
  1. AMOXICILLINE PANPHARMA [Suspect]
     Active Substance: AMOXICILLIN
     Indication: POSTOPERATIVE WOUND INFECTION
     Dosage: 6 G, UNK
     Route: 041
     Dates: start: 20190611, end: 20190616
  2. DALACINE [Suspect]
     Active Substance: CLINDAMYCIN
     Indication: POSTOPERATIVE WOUND INFECTION
     Dosage: 6 DF, 1X/DAY
     Route: 048
     Dates: start: 20190611, end: 20190619

REACTIONS (3)
  - Toxic skin eruption [Recovered/Resolved]
  - Product use issue [Unknown]
  - Off label use [Unknown]

NARRATIVE: CASE EVENT DATE: 20190611
